FAERS Safety Report 16846140 (Version 1)
Quarter: 2019Q3

REPORT INFORMATION
  Report Type: Spontaneous
  Country: CA (occurrence: CA)
  Receive Date: 20190924
  Receipt Date: 20190924
  Transmission Date: 20191005
  Serious: Yes (Other)
  Sender: FDA-Public Use
  Company Number: CA-TEVA-2019-CA-1113091

PATIENT
  Age: 27 Year
  Sex: Male
  Weight: 83 kg

DRUGS (4)
  1. QUETIAPINE. [Suspect]
     Active Substance: QUETIAPINE
     Indication: BIPOLAR DISORDER
     Dosage: 100 MILLIGRAM DAILY;
  2. QUETIAPINE. [Suspect]
     Active Substance: QUETIAPINE
     Dosage: 200 MILLIGRAM DAILY;
  3. VENLAFAXINE HYDROCHLORIDE. [Suspect]
     Active Substance: VENLAFAXINE HYDROCHLORIDE
     Indication: BIPOLAR DISORDER
  4. VALPROATE SEMISODIUM [Suspect]
     Active Substance: DIVALPROEX SODIUM
     Indication: BIPOLAR DISORDER
     Dosage: 250 MILLIGRAM DAILY;

REACTIONS (1)
  - Rhabdomyolysis [Recovered/Resolved]
